FAERS Safety Report 15102708 (Version 1)
Quarter: 2018Q3

REPORT INFORMATION
  Report Type: Spontaneous
  Country: US (occurrence: US)
  Receive Date: 20180703
  Receipt Date: 20180703
  Transmission Date: 20181010
  Serious: Yes (Hospitalization, Other)
  Sender: FDA-Public Use
  Company Number: US-SA-2018SA169790

PATIENT
  Age: 44 Year
  Sex: Male

DRUGS (4)
  1. ALIMTA [Concomitant]
     Active Substance: PEMETREXED DISODIUM
  2. AUBAGIO [Suspect]
     Active Substance: TERIFLUNOMIDE
     Dosage: UNK, QD
     Route: 048
  3. MYRBETRIQ [Concomitant]
     Active Substance: MIRABEGRON
  4. ATENOLOL. [Concomitant]
     Active Substance: ATENOLOL

REACTIONS (5)
  - White blood cell count decreased [Unknown]
  - Feeling hot [Unknown]
  - Hyperhidrosis [Unknown]
  - Chills [Unknown]
  - Hospitalisation [Unknown]

NARRATIVE: CASE EVENT DATE: 20180613
